FAERS Safety Report 6829028-9 (Version None)
Quarter: 2010Q3

REPORT INFORMATION
  Report Type: 
  Country: None (occurrence: None)
  Receive Date: 20100706
  Receipt Date: 20100621
  Transmission Date: 20110219
  Serious: Yes (Hospitalization)
  Sender: FDA-Public Use
  Company Number: LEO-2010-00580

PATIENT
  Age: 9 Month
  Sex: Female
  Weight: 10 kg

DRUGS (2)
  1. INNOHEP [Suspect]
     Indication: JUGULAR VEIN THROMBOSIS
     Dosage: 2500 IU (2500 IU, ONCE, SUBCUTANEOUS) 12000 IU 1 IN 1 D, SUBCUTANEOUS, 250 IU 1 IN 1 D, SUBCUTANEOUS
     Route: 058
     Dates: start: 20100430, end: 20100508
  2. INNOHEP [Suspect]
     Indication: JUGULAR VEIN THROMBOSIS
     Dosage: 2500 IU (2500 IU, ONCE, SUBCUTANEOUS) 12000 IU 1 IN 1 D, SUBCUTANEOUS, 250 IU 1 IN 1 D, SUBCUTANEOUS
     Route: 058
     Dates: start: 20100509

REACTIONS (2)
  - ACCIDENTAL OVERDOSE [None]
  - DRUG PRESCRIBING ERROR [None]
